FAERS Safety Report 12362251 (Version 3)
Quarter: 2016Q2

REPORT INFORMATION
  Report Type: Spontaneous
  Country: US (occurrence: US)
  Receive Date: 20160512
  Receipt Date: 20160623
  Transmission Date: 20160815
  Serious: Yes (Hospitalization, Other)
  Sender: FDA-Public Use
  Company Number: US-ALEXION PHARMACEUTICALS INC-A201603368

PATIENT
  Age: 57 Year
  Sex: Male

DRUGS (1)
  1. SOLIRIS [Suspect]
     Active Substance: ECULIZUMAB
     Indication: PAROXYSMAL NOCTURNAL HAEMOGLOBINURIA
     Dosage: 900 MG, Q2W
     Route: 042
     Dates: end: 20160601

REACTIONS (9)
  - Myocardial necrosis marker increased [Unknown]
  - Cholelithiasis [Not Recovered/Not Resolved]
  - Dizziness [Unknown]
  - Blood creatinine increased [Unknown]
  - Diverticulitis [Not Recovered/Not Resolved]
  - Fatigue [Unknown]
  - Haemolysis [Recovered/Resolved]
  - Pain [Unknown]
  - Anaemia [Unknown]

NARRATIVE: CASE EVENT DATE: 20160611
